FAERS Safety Report 7624651-6 (Version None)
Quarter: 2011Q3

REPORT INFORMATION
  Report Type: 
  Country: None (occurrence: None)
  Receive Date: 20110720
  Receipt Date: 20110713
  Transmission Date: 20111222
  Serious: Yes (Other)
  Sender: FDA-Public Use
  Company Number: US-ABBOTT-11P-163-0710341-00

PATIENT
  Sex: Female
  Weight: 88.53 kg

DRUGS (5)
  1. VERAPAMIL [Concomitant]
     Indication: HYPERTENSION
     Dosage: 120MG DAILY
  2. HUMIRA [Suspect]
     Indication: CHORIORETINOPATHY
     Dates: start: 20090101, end: 20100501
  3. HUMIRA [Suspect]
     Indication: UVEITIS
  4. BENAZAPRIL [Concomitant]
     Indication: HYPERTENSION
     Dosage: 20MG DAILY
  5. ATENOLOL [Concomitant]
     Indication: HYPERTENSION
     Dosage: 50MG DAILY

REACTIONS (3)
  - VISION BLURRED [None]
  - EYE INFLAMMATION [None]
  - EYE DISORDER [None]
